FAERS Safety Report 12755908 (Version 1)
Quarter: 2016Q3

REPORT INFORMATION
  Report Type: Spontaneous
  Country: US (occurrence: US)
  Receive Date: 20160916
  Receipt Date: 20160916
  Transmission Date: 20161109
  Serious: Yes (Hospitalization, Other)
  Sender: FDA-Public Use
  Company Number: US-009507513-1609USA004754

PATIENT
  Age: 60 Year
  Sex: Male

DRUGS (1)
  1. INTRON A [Suspect]
     Active Substance: INTERFERON ALFA-2B
     Indication: MYCOSIS FUNGOIDES
     Dosage: 0.5 ML, TIW STRENGHT: 18 MU MDV (6 MU/ML) 4=1
     Dates: start: 20151217

REACTIONS (1)
  - Prostate infection [Recovering/Resolving]

NARRATIVE: CASE EVENT DATE: 201608
